FAERS Safety Report 7047055-6 (Version None)
Quarter: 2010Q4

REPORT INFORMATION
  Report Type: 
  Country: None (occurrence: None)
  Receive Date: 20101015
  Receipt Date: 20101007
  Transmission Date: 20110411
  Serious: No
  Sender: FDA-Public Use
  Company Number: US-ROXANE LABORATORIES, INC.-2010-RO-01338RO

PATIENT
  Age: 39 Year
  Sex: Female
  Weight: 51 kg

DRUGS (5)
  1. PREDNISONE [Suspect]
     Indication: SINUS DISORDER
     Dosage: 5 MG
     Route: 048
     Dates: start: 20100801
  2. PREDNISONE [Suspect]
     Indication: VIRAL INFECTION
  3. SEPTRA DS [Suspect]
     Indication: SINUS DISORDER
     Dosage: 800 MG
     Route: 048
     Dates: start: 20100801
  4. SEPTRA DS [Suspect]
     Indication: NASAL CONGESTION
  5. SEPTRA DS [Suspect]
     Indication: VIRAL INFECTION

REACTIONS (7)
  - ARTHRALGIA [None]
  - FEELING HOT [None]
  - HEADACHE [None]
  - OCULAR HYPERAEMIA [None]
  - PAIN [None]
  - PAIN IN EXTREMITY [None]
  - PARAESTHESIA [None]
